FAERS Safety Report 7730506-9 (Version None)
Quarter: 2011Q3

REPORT INFORMATION
  Report Type: 
  Country: None (occurrence: None)
  Receive Date: 20110906
  Receipt Date: 20110826
  Transmission Date: 20111222
  Serious: Yes (Other)
  Sender: FDA-Public Use
  Company Number: PHHY2011DE77047

PATIENT
  Sex: Female

DRUGS (3)
  1. NOVOTHYRAL [Concomitant]
     Dosage: UNK UKN, UNK
     Route: 048
     Dates: start: 20000101
  2. VOLTAREN [Suspect]
     Indication: NEURALGIA
     Dosage: 75 MG, 3 CAPSULES PER DAY
     Route: 048
     Dates: start: 20110801
  3. VOLTAREN [Suspect]
     Dosage: 75 MG, ONE CAPSULE PER DAY
     Route: 048

REACTIONS (4)
  - DERMATITIS ALLERGIC [None]
  - RASH [None]
  - EYELIDS PRURITUS [None]
  - NAUSEA [None]
